FAERS Safety Report 9110597 (Version 1)
Quarter: 2013Q1

REPORT INFORMATION
  Report Type: Spontaneous
  Country: US (occurrence: US)
  Receive Date: 20130219
  Receipt Date: 20130219
  Transmission Date: 20140127
  Serious: No
  Sender: FDA-Public Use
  Company Number: US-BRISTOL-MYERS SQUIBB COMPANY-16590689

PATIENT
  Age: 71 Year
  Sex: Female

DRUGS (7)
  1. ORENCIA [Suspect]
     Indication: RHEUMATOID ARTHRITIS
     Dosage: 500MGIV , THEN 125MG SC*2 DAYS?16MAY2012
     Route: 058
     Dates: start: 20120509
  2. RECLAST [Suspect]
     Route: 042
  3. METHOTREXATE [Concomitant]
  4. ZYRTEC [Concomitant]
  5. ADVAIR [Concomitant]
  6. ZANTAC [Concomitant]
  7. MOBIC [Concomitant]

REACTIONS (5)
  - Pyrexia [Unknown]
  - Chills [Unknown]
  - Throat irritation [Unknown]
  - Night sweats [Unknown]
  - Bone pain [Unknown]
